FAERS Safety Report 10089386 (Version 1)
Quarter: 2014Q2

REPORT INFORMATION
  Report Type: Spontaneous
  Country: FR (occurrence: None)
  Receive Date: 20140417
  Receipt Date: 20140417
  Transmission Date: 20141212
  Serious: Yes (Other)
  Sender: FDA-Public Use
  Company Number: ABR_01583_2014

PATIENT
  Age: 31 Year
  Sex: Female

DRUGS (1)
  1. ERYTHROCINE /00020901/ (ERYTHROCINE) 500 MG (NOT SPECIFIED) [Suspect]
     Indication: CHLAMYDIAL CERVICITIS
     Route: 048
     Dates: start: 20140220, end: 20140227

REACTIONS (5)
  - Rash pruritic [None]
  - Diarrhoea [None]
  - Pain [None]
  - Vomiting [None]
  - Hypersensitivity [None]
